FAERS Safety Report 6284981-X (Version None)
Quarter: 2009Q3

REPORT INFORMATION
  Report Type: 
  Country: None (occurrence: None)
  Receive Date: 20090727
  Receipt Date: 20081120
  Transmission Date: 20100115
  Serious: No
  Sender: FDA-Public Use
  Company Number: US-ABBOTT-08P-163-0489481-00

PATIENT
  Sex: Male

DRUGS (4)
  1. NORVIR [Suspect]
     Indication: DRUG USE FOR UNKNOWN INDICATION
  2. ATAZANAVIR SULFATE [Suspect]
     Indication: HIV INFECTION
     Dates: start: 20070801
  3. TRUVADA [Suspect]
     Indication: DRUG USE FOR UNKNOWN INDICATION
  4. ESCITALOPRAM OXALATE [Suspect]
     Indication: DRUG USE FOR UNKNOWN INDICATION

REACTIONS (1)
  - DRUG SCREEN FALSE POSITIVE [None]
